FAERS Safety Report 8328253-8 (Version None)
Quarter: 2012Q2

REPORT INFORMATION
  Report Type: 
  Country: None (occurrence: None)
  Receive Date: 20120430
  Receipt Date: 20120419
  Transmission Date: 20120825
  Serious: Yes (Hospitalization)
  Sender: FDA-Public Use
  Company Number: 2012HGS-003545

PATIENT
  Sex: Female

DRUGS (1)
  1. BENLYSTA [Suspect]
     Indication: SYSTEMIC LUPUS ERYTHEMATOSUS
     Dosage: INTRAVENOUS DRIP
     Route: 041

REACTIONS (4)
  - ARTHRALGIA [None]
  - CONCOMITANT DISEASE AGGRAVATED [None]
  - PAIN IN EXTREMITY [None]
  - LEUKOPENIA [None]
